FAERS Safety Report 25140599 (Version 2)
Quarter: 2025Q1

REPORT INFORMATION
  Report Type: Spontaneous
  Country: US (occurrence: US)
  Receive Date: 20250331
  Receipt Date: 20250331
  Transmission Date: 20250408
  Serious: Yes (Death, Life-Threatening, Hospitalization)
  Sender: AMGEN
  Company Number: US-AMGEN-USASP2025060334

PATIENT

DRUGS (1)
  1. PREDNISONE [Suspect]
     Active Substance: PREDNISONE
     Indication: Pneumonitis
     Dosage: UNK UNK, QD, DOSES RANGED FROM 40 MG TO 120 MG
     Route: 065

REACTIONS (8)
  - Malignant melanoma [Fatal]
  - Neoplasm malignant [Fatal]
  - Lung neoplasm malignant [Fatal]
  - Renal cell carcinoma [Fatal]
  - Squamous cell carcinoma of head and neck [Fatal]
  - Bladder cancer [Fatal]
  - Immune-mediated lung disease [Unknown]
  - Drug ineffective [Unknown]
